FAERS Safety Report 5009196-4 (Version None)
Quarter: 2006Q2

REPORT INFORMATION
  Report Type: 
  Country: None (occurrence: None)
  Receive Date: 20060519
  Receipt Date: 20060511
  Transmission Date: 20061013
  Serious: Yes (Other)
  Sender: FDA-Public Use
  Company Number: 2006062538

PATIENT
  Sex: Female

DRUGS (3)
  1. BENADRYL [Suspect]
     Indication: HYPERSENSITIVITY
     Dosage: TWO TABLETS DAILY, ORAL
     Route: 048
  2. ANTIHYPERTENSIVES (ANTIHYPERTENSIVES) [Concomitant]
  3. ALPRAZOLAM [Concomitant]

REACTIONS (5)
  - CONFUSIONAL STATE [None]
  - DELUSION [None]
  - HYPERHIDROSIS [None]
  - SOMNOLENCE [None]
  - WHEEZING [None]
